FAERS Safety Report 4613865-5 (Version None)
Quarter: 2005Q1

REPORT INFORMATION
  Report Type: 
  Country: None (occurrence: None)
  Receive Date: 20050321
  Receipt Date: 20050310
  Transmission Date: 20050727
  Serious: Yes (Other)
  Sender: FDA-Public Use
  Company Number: PHEH2005US03010

PATIENT
  Age: 50 Year
  Sex: Female

DRUGS (2)
  1. ZOMETA [Suspect]
     Indication: METASTASES TO BONE
     Dosage: 4 MG, QMO
     Dates: start: 20021121, end: 20050208
  2. VELCADE [Concomitant]
     Indication: MULTIPLE MYELOMA
     Dosage: 1.8 MG, UNK
     Dates: start: 20040818

REACTIONS (2)
  - BIOPSY SITE UNSPECIFIED ABNORMAL [None]
  - SOFT TISSUE DISORDER [None]
